FAERS Safety Report 9630608 (Version 1)
Quarter: 2013Q4

REPORT INFORMATION
  Report Type: Spontaneous
  Country: US (occurrence: None)
  Receive Date: 20131016
  Receipt Date: 20131016
  Transmission Date: 20140711
  Serious: No
  Sender: FDA-Public Use
  Company Number: None

PATIENT
  Age: 46 Year
  Sex: Female
  Weight: 77.11 kg

DRUGS (1)
  1. MIRENA IUD [Suspect]
     Dates: start: 20131009

REACTIONS (7)
  - Intervertebral disc protrusion [None]
  - Intervertebral disc degeneration [None]
  - Arthralgia [None]
  - Malaise [None]
  - Alopecia [None]
  - Gastroenteritis viral [None]
  - Intervertebral disc disorder [None]
